FAERS Safety Report 4358622-2 (Version None)
Quarter: 2004Q2

REPORT INFORMATION
  Report Type: 
  Country: None (occurrence: None)
  Receive Date: 20040512
  Receipt Date: 20040512
  Transmission Date: 20050107
  Serious: Yes (Hospitalization)
  Sender: FDA-Public Use
  Company Number: None

PATIENT
  Age: 77 Year
  Sex: Male
  Weight: 87 kg

DRUGS (12)
  1. OMNIPAQUE 240 [Suspect]
     Dosage: ADMINISTERED DURING CATHETERIZATION
  2. LEVOPHED [Concomitant]
  3. NITROGLYCERIN [Concomitant]
  4. INTEGRILIN [Concomitant]
  5. DOBUTAMINE [Concomitant]
  6. DOPAMINE HCL [Concomitant]
  7. PLAVIX [Concomitant]
  8. GLIPIZIDE [Concomitant]
  9. TOPROL-XL [Concomitant]
  10. ZOCOR [Concomitant]
  11. ECOTRIN [Concomitant]
  12. COZAAR [Concomitant]

REACTIONS (1)
  - RENAL FAILURE ACUTE [None]
